FAERS Safety Report 8129792-5 (Version None)
Quarter: 2012Q1

REPORT INFORMATION
  Report Type: 
  Country: None (occurrence: None)
  Receive Date: 20120210
  Receipt Date: 20120210
  Transmission Date: 20120608
  Serious: Yes (Other)
  Sender: FDA-Public Use
  Company Number: None

PATIENT
  Age: 49 Year
  Sex: Female
  Weight: 90.718 kg

DRUGS (1)
  1. FANAPT [Suspect]
     Indication: SCHIZOAFFECTIVE DISORDER BIPOLAR TYPE
     Dosage: 4MG
     Route: 048
     Dates: start: 20111227, end: 20120110

REACTIONS (3)
  - FACE OEDEMA [None]
  - PERIORBITAL OEDEMA [None]
  - OEDEMA PERIPHERAL [None]
